FAERS Safety Report 24564051 (Version 2)
Quarter: 2024Q4

REPORT INFORMATION
  Report Type: Report from Study
  Country: GB (occurrence: GB)
  Receive Date: 20241030
  Receipt Date: 20241126
  Transmission Date: 20250114
  Serious: Yes (Other)
  Sender: UCB
  Company Number: GB-UCBSA-2024055101

PATIENT
  Sex: Female

DRUGS (1)
  1. CERTOLIZUMAB PEGOL [Suspect]
     Active Substance: CERTOLIZUMAB PEGOL
     Indication: Rheumatoid arthritis
     Dosage: 200 MILLIGRAM, EV 3 WEEKS
     Route: 058

REACTIONS (5)
  - Lower respiratory tract infection [Unknown]
  - Lung disorder [Unknown]
  - Foot deformity [Unknown]
  - Intentional dose omission [Unknown]
  - Product availability issue [Unknown]
